FAERS Safety Report 9641965 (Version 1)
Quarter: 2013Q4

REPORT INFORMATION
  Report Type: Spontaneous
  Country: GB (occurrence: None)
  Receive Date: 20131022
  Receipt Date: 20131022
  Transmission Date: 20140711
  Serious: Yes (Other)
  Sender: FDA-Public Use
  Company Number: AUR-APL-2013-08557

PATIENT
  Age: 55 Year
  Sex: Female

DRUGS (3)
  1. RIBAVIRIN [Suspect]
     Indication: HEPATITIS C
     Route: 048
     Dates: start: 20130115
  2. INTERFERON [Suspect]
     Indication: HEPATITIS C
     Dates: start: 20130115
  3. TELAPREVIR [Suspect]
     Indication: HEPATITIS C
     Dates: start: 20130115

REACTIONS (9)
  - Decreased appetite [None]
  - Malaise [None]
  - Vomiting [None]
  - Lethargy [None]
  - Fatigue [None]
  - Dizziness [None]
  - Vaginal haemorrhage [None]
  - Paraesthesia [None]
  - Cough [None]
